FAERS Safety Report 5580320-8 (Version None)
Quarter: 2008Q1

REPORT INFORMATION
  Report Type: 
  Country: None (occurrence: None)
  Receive Date: 20080103
  Receipt Date: 20071219
  Transmission Date: 20080703
  Serious: Yes (Hospitalization)
  Sender: FDA-Public Use
  Company Number: US-AMGEN-STX252261

PATIENT
  Sex: Female
  Weight: 90.3 kg

DRUGS (4)
  1. ENBREL [Suspect]
     Indication: PSORIASIS
     Route: 058
     Dates: start: 20040629
  2. SINGULAIR [Concomitant]
     Route: 065
  3. ALBUTEROL [Concomitant]
  4. NSAID [Concomitant]
     Route: 065

REACTIONS (7)
  - BLOOD CHOLESTEROL INCREASED [None]
  - BLOOD THYROID STIMULATING HORMONE DECREASED [None]
  - CHOLECYSTITIS CHRONIC [None]
  - CHOLELITHIASIS [None]
  - HIATUS HERNIA [None]
  - INJECTION SITE IRRITATION [None]
  - INTERVERTEBRAL DISC OPERATION [None]
